FAERS Safety Report 8900939 (Version 1)
Quarter: 2012Q4

REPORT INFORMATION
  Report Type: 
  Country: US (occurrence: US)
  Receive Date: 20121109
  Receipt Date: 20121109
  Transmission Date: 20130627
  Serious: Yes (Hospitalization, Other)
  Sender: FDA-Public Use
  Company Number: US-ROCHE-785435

PATIENT
  Age: 22 None
  Sex: Male
  Weight: 68.1 kg

DRUGS (1)
  1. ACCUTANE [Suspect]
     Indication: ACNE
     Route: 065
     Dates: start: 1988, end: 1989

REACTIONS (6)
  - Rectal abscess [Unknown]
  - Abdominal abscess [Unknown]
  - Crohn^s disease [Unknown]
  - Inflammatory bowel disease [Unknown]
  - Emotional distress [Not Recovered/Not Resolved]
  - Intestinal obstruction [Unknown]
